FAERS Safety Report 18710766 (Version 1)
Quarter: 2021Q1

REPORT INFORMATION
  Report Type: Report from Study
  Country: US (occurrence: US)
  Receive Date: 20210107
  Receipt Date: 20210107
  Transmission Date: 20210419
  Serious: Yes (Other)
  Sender: FDA-Public Use
  Company Number: US-BIOGEN-2021BI00964744

PATIENT
  Sex: Female

DRUGS (2)
  1. PHENOBARBITAL. [Suspect]
     Active Substance: PHENOBARBITAL
     Indication: EPILEPSY
     Route: 065
  2. TECFIDERA [Suspect]
     Active Substance: DIMETHYL FUMARATE
     Indication: MULTIPLE SCLEROSIS
     Route: 065
     Dates: start: 20150112

REACTIONS (2)
  - Epilepsy [Not Recovered/Not Resolved]
  - Skin exfoliation [Unknown]

NARRATIVE: CASE EVENT DATE: 2020
